FAERS Safety Report 6558568-5 (Version None)
Quarter: 2010Q1

REPORT INFORMATION
  Report Type: 
  Country: None (occurrence: None)
  Receive Date: 20100129
  Receipt Date: 20090921
  Transmission Date: 20100710
  Serious: No
  Sender: FDA-Public Use
  Company Number: A0805997A

PATIENT
  Age: 67 Year
  Sex: Male

DRUGS (8)
  1. MEPRON [Suspect]
     Indication: BABESIOSIS
     Dosage: 750MG TWICE PER DAY
     Route: 048
     Dates: start: 20090714, end: 20090906
  2. DOXYCYCLINE [Suspect]
     Indication: LYME DISEASE
     Dosage: 100MG TWICE PER DAY
     Route: 048
     Dates: start: 20090722, end: 20090903
  3. CEFUROXIME AXETIL [Suspect]
     Indication: LYME DISEASE
     Dosage: 500MG TWICE PER DAY
     Route: 048
     Dates: start: 20090903, end: 20090907
  4. AZITHROMYCIN [Concomitant]
     Dosage: 500MG PER DAY
     Route: 048
     Dates: start: 20090714, end: 20090908
  5. GLIPIZIDE [Concomitant]
  6. METFORMIN [Concomitant]
  7. SIMVASTATIN [Concomitant]
  8. ASPIRIN [Concomitant]

REACTIONS (7)
  - ASTHENIA [None]
  - DYSPNOEA [None]
  - HYPOAESTHESIA [None]
  - JOINT SWELLING [None]
  - OEDEMA PERIPHERAL [None]
  - RASH [None]
  - SKIN EXFOLIATION [None]
